FAERS Safety Report 8017755-X (Version None)
Quarter: 2012Q1

REPORT INFORMATION
  Report Type: 
  Country: None (occurrence: None)
  Receive Date: 20120103
  Receipt Date: 20111228
  Transmission Date: 20120608
  Serious: No
  Sender: FDA-Public Use
  Company Number: US-PFIZER INC-2011315553

PATIENT
  Sex: Female

DRUGS (1)
  1. GLIPIZIDE [Suspect]
     Indication: TYPE 2 DIABETES MELLITUS
     Dosage: 10 MG, UNK
     Dates: start: 20111201, end: 20111201

REACTIONS (1)
  - URTICARIA [None]
